FAERS Safety Report 22202906 (Version 1)
Quarter: 2023Q2

REPORT INFORMATION
  Report Type: Spontaneous
  Country: US (occurrence: None)
  Receive Date: 20230412
  Receipt Date: 20230412
  Transmission Date: 20230722
  Serious: Yes (Hospitalization)
  Sender: FDA-Public Use
  Company Number: None

PATIENT
  Sex: Female

DRUGS (3)
  1. AMBRISENTAN [Suspect]
     Active Substance: AMBRISENTAN
     Indication: Pulmonary arterial hypertension
     Dosage: FREQUENCY : DAILY;?
     Route: 048
     Dates: start: 201907
  2. FUROSEMIDE [Suspect]
     Active Substance: FUROSEMIDE
  3. BUMETANIDE [Suspect]
     Active Substance: BUMETANIDE

REACTIONS (3)
  - Fluid retention [None]
  - Cardiac failure congestive [None]
  - Therapy cessation [None]
